FAERS Safety Report 5007801-X (Version None)
Quarter: 2006Q2

REPORT INFORMATION
  Report Type: 
  Country: None (occurrence: None)
  Receive Date: 20060522
  Receipt Date: 20060512
  Transmission Date: 20061013
  Serious: Yes (Other)
  Sender: FDA-Public Use
  Company Number: BE-GLAXOSMITHKLINE-B0424209A

PATIENT
  Sex: Female

DRUGS (1)
  1. ZEFFIX [Suspect]
     Indication: HEPATITIS B
     Dosage: 100MG PER DAY
     Route: 048
     Dates: start: 20050101

REACTIONS (3)
  - PREGNANCY OF PARTNER [None]
  - STILLBIRTH [None]
  - TRANSMISSION OF DRUG VIA SEMEN [None]
